FAERS Safety Report 7425429-9 (Version None)
Quarter: 2011Q2

REPORT INFORMATION
  Report Type: 
  Country: None (occurrence: None)
  Receive Date: 20110420
  Receipt Date: 20110414
  Transmission Date: 20111010
  Serious: Yes (Life-Threatening, Other)
  Sender: FDA-Public Use
  Company Number: JP-ASTELLAS-2010JP007527

PATIENT
  Sex: Female
  Weight: 10 kg

DRUGS (100)
  1. VEPESID [Suspect]
     Dosage: UNK
     Route: 041
     Dates: start: 20091111, end: 20091111
  2. TEPRENONE [Concomitant]
     Dosage: UNK
     Route: 048
     Dates: end: 20091104
  3. AMLODIN [Concomitant]
     Dosage: UNK
     Route: 048
     Dates: start: 20091109, end: 20091210
  4. KYTRIL [Concomitant]
     Dosage: UNK
     Route: 041
     Dates: start: 20091107, end: 20091114
  5. ATARAX [Concomitant]
     Dosage: UNK
     Route: 042
     Dates: start: 20091109, end: 20091109
  6. ATARAX [Concomitant]
     Dosage: UNK
     Route: 042
     Dates: start: 20091121, end: 20091121
  7. HYDROCORTONE [Concomitant]
     Dosage: UNK
     Route: 041
     Dates: start: 20091116, end: 20091116
  8. WATER FOR INJECTION [Concomitant]
     Dosage: UNK
     Route: 041
     Dates: start: 20091117, end: 20091117
  9. WATER FOR INJECTION [Concomitant]
     Dosage: UNK
     Route: 041
     Dates: start: 20091205, end: 20091207
  10. WATER FOR INJECTION [Concomitant]
     Dosage: UNK
     Route: 041
     Dates: start: 20091209
  11. VOLVIX [Concomitant]
     Dosage: UNK
     Route: 042
     Dates: start: 20100104
  12. GASTER [Concomitant]
     Dosage: UNK
     Route: 042
     Dates: start: 20091210, end: 20091210
  13. CALCICOL [Concomitant]
     Dosage: UNK
     Route: 042
     Dates: start: 20091207, end: 20091208
  14. ENDOXAN [Suspect]
     Dosage: 700 MG, UNKNOWN/D
     Route: 041
     Dates: start: 20091112, end: 20091113
  15. ANTI-THYMOCYTE GLOBULIN NOS [Concomitant]
     Dosage: UNK
     Route: 065
  16. BLOPRESS [Concomitant]
     Dosage: UNK
     Route: 048
     Dates: end: 20091213
  17. URSO 250 [Concomitant]
     Dosage: UNK
     Route: 048
     Dates: end: 20091109
  18. SOLDEM 3A [Concomitant]
     Dosage: UNK
     Route: 042
     Dates: end: 20091118
  19. POLARAMINE [Concomitant]
     Dosage: UNK
     Route: 042
     Dates: start: 20091116, end: 20091116
  20. SOLDEM 1 [Concomitant]
     Dosage: UNK
     Route: 042
     Dates: start: 20091223, end: 20091226
  21. ATARAX [Concomitant]
     Dosage: UNK
     Route: 042
     Dates: start: 20091123, end: 20091123
  22. ATARAX [Concomitant]
     Dosage: UNK
     Route: 042
     Dates: start: 20091126, end: 20091126
  23. TARGOCID [Concomitant]
     Dosage: UNK
     Route: 041
     Dates: start: 20091113, end: 20091208
  24. TARGOCID [Concomitant]
     Dosage: UNK
     Route: 041
     Dates: start: 20091223, end: 20091229
  25. HAPTOGLOBINS [Concomitant]
     Dosage: UNK
     Route: 041
     Dates: start: 20091116, end: 20091116
  26. METHOTREXATE [Concomitant]
     Dosage: UNK
     Route: 041
     Dates: start: 20091117, end: 20091117
  27. GASTER [Concomitant]
     Dosage: UNK
     Route: 042
     Dates: start: 20091121, end: 20091208
  28. CIPROFLOXACIN HCL [Concomitant]
     Dosage: UNK
     Route: 041
     Dates: start: 20091204, end: 20091210
  29. CIPROFLOXACIN HCL [Concomitant]
     Dosage: UNK
     Route: 041
     Dates: start: 20091229, end: 20091229
  30. BUSULFEX [Suspect]
     Dosage: UNK
     Route: 041
     Dates: start: 20091107, end: 20091111
  31. MTX [Concomitant]
     Indication: PROPHYLAXIS AGAINST GRAFT VERSUS HOST DISEASE
     Route: 065
  32. TEPRENONE [Concomitant]
     Dosage: UNK
     Route: 048
     Dates: start: 20091109
  33. PROPETO [Concomitant]
     Dosage: UNK
     Route: 065
     Dates: start: 20091110, end: 20091110
  34. PROPETO [Concomitant]
     Dosage: UNK
     Route: 065
     Dates: start: 20091122, end: 20091122
  35. SOLDEM 3A [Concomitant]
     Dosage: UNK
     Route: 042
     Dates: start: 20091221, end: 20091222
  36. PERDIPINE [Concomitant]
     Dosage: UNK
     Route: 042
     Dates: end: 20091215
  37. FUNGUARD [Concomitant]
     Dosage: UNK
     Route: 041
     Dates: start: 20091105, end: 20091128
  38. ATARAX [Concomitant]
     Dosage: UNK
     Route: 042
     Dates: start: 20091218, end: 20091218
  39. METHOTREXATE [Concomitant]
     Dosage: UNK
     Route: 041
     Dates: start: 20091128, end: 20091128
  40. WATER FOR INJECTION [Concomitant]
     Dosage: UNK
     Route: 041
     Dates: start: 20091122, end: 20091122
  41. MORPHINE HYDROCHLORIDE [Concomitant]
     Dosage: UNK
     Route: 042
     Dates: start: 20091121, end: 20091208
  42. IMMUNE GLOBULIN INTRAVENOUS (HUMAN) [Concomitant]
     Dosage: UNK
     Route: 042
     Dates: start: 20091120, end: 20091120
  43. IMMUNE GLOBULIN INTRAVENOUS (HUMAN) [Concomitant]
     Dosage: UNK
     Route: 042
     Dates: start: 20091208, end: 20091208
  44. IMMUNE GLOBULIN INTRAVENOUS (HUMAN) [Concomitant]
     Dosage: UNK
     Route: 042
     Dates: start: 20091225, end: 20091226
  45. IMMUNE GLOBULIN INTRAVENOUS (HUMAN) [Concomitant]
     Dosage: UNK
     Route: 042
     Dates: start: 20091231, end: 20091231
  46. NEUTROGIN [Concomitant]
     Dosage: UNK
     Route: 042
     Dates: start: 20091121, end: 20091210
  47. LASIX [Concomitant]
     Dosage: UNK
     Route: 042
     Dates: start: 20091129, end: 20091129
  48. FOSCAVIR [Concomitant]
     Dosage: UNK
     Route: 041
     Dates: start: 20091203, end: 20091210
  49. PROPETO [Concomitant]
     Dosage: UNK
     Route: 065
     Dates: start: 20091203, end: 20091203
  50. MEPTIN [Concomitant]
     Dosage: UNK
     Route: 048
     Dates: start: 20091113, end: 20091115
  51. WHITE PETROLEUM [Concomitant]
     Dosage: UNK
     Route: 065
     Dates: start: 20100104
  52. AZUNOL [Concomitant]
     Dosage: UNK
     Route: 061
     Dates: start: 20091122, end: 20091122
  53. SOLDEM 1 [Concomitant]
     Dosage: UNK
     Route: 042
     Dates: start: 20100104
  54. METHOTREXATE [Concomitant]
     Dosage: UNK
     Route: 041
     Dates: start: 20091119, end: 20091119
  55. ACIROVEC [Concomitant]
     Dosage: UNK
     Route: 041
     Dates: start: 20091117, end: 20091203
  56. IMMUNE GLOBULIN INTRAVENOUS (HUMAN) [Concomitant]
     Dosage: UNK
     Route: 042
     Dates: start: 20091124, end: 20091125
  57. IMMUNE GLOBULIN INTRAVENOUS (HUMAN) [Concomitant]
     Dosage: UNK
     Route: 042
     Dates: start: 20091201, end: 20091201
  58. TIENAM [Concomitant]
     Dosage: UNK
     Route: 041
     Dates: start: 20091123, end: 20091201
  59. AMIKACIN SULFATE [Concomitant]
     Dosage: UNK
     Route: 042
     Dates: start: 20091201, end: 20091207
  60. POTASSIUM CHLORIDE [Concomitant]
     Dosage: UNK
     Route: 041
     Dates: start: 20091217, end: 20091221
  61. WHITE PETROLEUM [Concomitant]
     Dosage: UNK
     Route: 065
     Dates: start: 20091119, end: 20091120
  62. PERDIPINE [Concomitant]
     Dosage: UNK
     Route: 042
     Dates: start: 20091221, end: 20100101
  63. SOLDEM 1 [Concomitant]
     Dosage: UNK
     Route: 042
     Dates: end: 20091221
  64. SOL-MELCORT [Concomitant]
     Dosage: UNK
     Route: 041
     Dates: end: 20091106
  65. WATER FOR INJECTION [Concomitant]
     Dosage: UNK
     Route: 041
     Dates: start: 20091119, end: 20091119
  66. LASIX [Concomitant]
     Dosage: UNK
     Route: 042
     Dates: start: 20091127, end: 20091127
  67. VFEND [Concomitant]
     Dosage: UNK
     Route: 041
     Dates: start: 20091128, end: 20091207
  68. MINOCYCLINE HCL [Concomitant]
     Dosage: UNK
     Route: 042
     Dates: start: 20091130, end: 20091201
  69. GABAPEN [Concomitant]
     Dosage: UNK
     Route: 048
     Dates: end: 20091213
  70. URSO 250 [Concomitant]
     Dosage: UNK
     Route: 048
     Dates: start: 20091112
  71. PROPETO [Concomitant]
     Dosage: UNK
     Route: 065
     Dates: start: 20091127, end: 20091127
  72. MUCODYNE [Concomitant]
     Dosage: UNK
     Route: 048
     Dates: start: 20091111, end: 20091208
  73. NEW LECICARBON [Concomitant]
     Dosage: UNK
     Route: 054
     Dates: start: 20091206, end: 20091208
  74. DEXART [Concomitant]
     Dosage: UNK
     Route: 042
     Dates: end: 20091110
  75. SOL-MELCORT [Concomitant]
     Dosage: UNK
     Route: 041
     Dates: start: 20091223, end: 20091223
  76. ATARAX [Concomitant]
     Dosage: UNK
     Route: 042
     Dates: start: 20091111, end: 20091112
  77. ATARAX [Concomitant]
     Dosage: UNK
     Route: 042
     Dates: start: 20091129, end: 20091201
  78. WATER FOR INJECTION [Concomitant]
     Dosage: UNK
     Route: 041
     Dates: start: 20091127, end: 20091127
  79. FULCALIQ [Concomitant]
     Dosage: UNK
     Route: 042
     Dates: start: 20091118, end: 20091228
  80. VOLVIX [Concomitant]
     Dosage: UNK
     Route: 042
     Dates: start: 20091118, end: 20091213
  81. LASIX [Concomitant]
     Dosage: UNK
     Route: 042
     Dates: start: 20091201, end: 20091204
  82. CIPROFLOXACIN HCL [Concomitant]
     Dosage: UNK
     Route: 041
     Dates: start: 20091223, end: 20091223
  83. PROGRAF [Suspect]
     Indication: PROPHYLAXIS AGAINST GRAFT VERSUS HOST DISEASE
     Dosage: 5 MG, CONTINUOUS
     Route: 041
     Dates: start: 20091115, end: 20091210
  84. PROPETO [Concomitant]
     Dosage: UNK
     Route: 065
     Dates: start: 20091211, end: 20091211
  85. AZUNOL [Concomitant]
     Dosage: UNK
     Route: 061
     Dates: start: 20091119, end: 20091120
  86. BROACT [Concomitant]
     Dosage: UNK
     Route: 042
     Dates: end: 20091113
  87. NOVO HEPARIN [Concomitant]
     Dosage: UNK
     Route: 042
     Dates: end: 20100103
  88. UROMITEXAN [Concomitant]
     Dosage: UNK
     Route: 042
     Dates: start: 20091112, end: 20091113
  89. CARBENIN [Concomitant]
     Dosage: UNK
     Route: 041
     Dates: start: 20091113, end: 20091123
  90. FULCALIQ [Concomitant]
     Dosage: UNK
     Route: 042
     Dates: start: 20100104
  91. LASIX [Concomitant]
     Dosage: UNK
     Route: 042
     Dates: start: 20091206
  92. CIPROFLOXACIN HCL [Concomitant]
     Dosage: UNK
     Route: 041
     Dates: start: 20091216, end: 20091216
  93. AMLODIN [Concomitant]
     Dosage: UNK
     Route: 048
     Dates: start: 20091220, end: 20091220
  94. ALIMEZINE [Concomitant]
     Dosage: UNK
     Route: 048
     Dates: start: 20091111, end: 20091208
  95. POLARAMINE [Concomitant]
     Dosage: UNK
     Route: 042
     Dates: end: 20091106
  96. SEISHOKU [Concomitant]
     Route: 042
  97. ATARAX [Concomitant]
     Dosage: UNK
     Route: 042
     Dates: start: 20091206, end: 20091211
  98. METHOTREXATE [Concomitant]
     Dosage: UNK
     Route: 041
     Dates: start: 20091122, end: 20091122
  99. MORPHINE HYDROCHLORIDE [Concomitant]
     Dosage: UNK
     Route: 042
     Dates: start: 20091119, end: 20091119
  100. POTASSIUM CHLORIDE [Concomitant]
     Dosage: UNK
     Route: 041
     Dates: start: 20091207, end: 20091209

REACTIONS (4)
  - DRUG INEFFECTIVE [None]
  - VENOOCCLUSIVE DISEASE [None]
  - ACUTE GRAFT VERSUS HOST DISEASE IN LIVER [None]
  - THROMBOTIC MICROANGIOPATHY [None]
